FAERS Safety Report 15011093 (Version 1)
Quarter: 2018Q2

REPORT INFORMATION
  Report Type: Spontaneous
  Country: US (occurrence: US)
  Receive Date: 20180614
  Receipt Date: 20180614
  Transmission Date: 20180711
  Serious: Yes (Other)
  Sender: FDA-Public Use
  Company Number: US-ROCHE-2137425

PATIENT
  Age: 68 Year
  Sex: Female
  Weight: 59.93 kg

DRUGS (2)
  1. LUCENTIS [Suspect]
     Active Substance: RANIBIZUMAB
     Indication: HAEMORRHAGE
     Route: 065
     Dates: start: 20180202
  2. LUCENTIS [Suspect]
     Active Substance: RANIBIZUMAB
     Route: 065
     Dates: start: 20180522

REACTIONS (5)
  - Seasonal allergy [Recovered/Resolved]
  - Pruritus generalised [Recovered/Resolved]
  - Fatigue [Recovered/Resolved]
  - Malaise [Recovered/Resolved]
  - Erythema annulare [Recovered/Resolved]

NARRATIVE: CASE EVENT DATE: 20180323
